FAERS Safety Report 9262114 (Version 2)
Quarter: 2013Q3

REPORT INFORMATION
  Report Type: Report from Study
  Country: FR (occurrence: FR)
  Receive Date: 20130430
  Receipt Date: 20130712
  Transmission Date: 20140515
  Serious: Yes (Other)
  Sender: FDA-Public Use
  Company Number: FR-AMGEN-FRACT2013029200

PATIENT
  Age: 60 Year
  Sex: Female

DRUGS (5)
  1. ETANERCEPT [Suspect]
     Indication: RHEUMATOID ARTHRITIS
     Dosage: 50 MG, QWK
     Route: 065
     Dates: start: 200703, end: 200710
  2. ETANERCEPT [Suspect]
     Dosage: 50 MG, QWK
     Route: 065
     Dates: start: 200711, end: 200801
  3. ETANERCEPT [Suspect]
     Dosage: 50 MG, QWK
     Route: 065
     Dates: start: 200802, end: 201001
  4. HYDROXYCHLOROQUINE [Concomitant]
     Dosage: 200 MG, 1X/DAY
     Dates: start: 200203, end: 201001
  5. PREDNISONE [Concomitant]
     Dosage: 10 MG, 1X/DAY
     Dates: start: 200808, end: 201001

REACTIONS (1)
  - Adenocarcinoma of the cervix [Not Recovered/Not Resolved]
